FAERS Safety Report 17087028 (Version 1)
Quarter: 2019Q4

REPORT INFORMATION
  Report Type: Spontaneous
  Country: GB (occurrence: GB)
  Receive Date: 20191128
  Receipt Date: 20191128
  Transmission Date: 20200122
  Serious: Yes (Disabling)
  Sender: FDA-Public Use
  Company Number: GB-TEVA-2019-GB-1142316

PATIENT
  Age: 45 Year
  Sex: Male
  Weight: 80 kg

DRUGS (2)
  1. HYDROCORTISONE. [Concomitant]
     Active Substance: HYDROCORTISONE
     Dosage: APPLY, 2 DF
     Dates: start: 20190123
  2. NITROFURANTOIN. [Suspect]
     Active Substance: NITROFURANTOIN
     Dosage: 200 MG
     Route: 048
     Dates: start: 20190123, end: 20190125

REACTIONS (3)
  - Paraesthesia [Recovered/Resolved]
  - Paraesthesia oral [Unknown]
  - Dizziness [Unknown]

NARRATIVE: CASE EVENT DATE: 20190123
